FAERS Safety Report 7224560-0 (Version None)
Quarter: 2011Q1

REPORT INFORMATION
  Report Type: 
  Country: None (occurrence: None)
  Receive Date: 20110113
  Receipt Date: 20110104
  Transmission Date: 20110831
  Serious: Yes (Other)
  Sender: FDA-Public Use
  Company Number: FR-JNJFOC-20110103086

PATIENT
  Age: 64 Year
  Sex: Male

DRUGS (6)
  1. VOLTAREN [Concomitant]
     Indication: INFLAMMATION
  2. NOVORAPID [Concomitant]
     Indication: DIABETES MELLITUS
  3. OMEPRAZOLE [Concomitant]
     Indication: GASTRIC DISORDER
  4. ACETAMINOPHEN AND TRAMADOL HCL [Suspect]
     Indication: PAIN
     Route: 048
  5. PERMIXON [Concomitant]
     Indication: PROSTATIC DISORDER
  6. LANTUS [Concomitant]
     Indication: DIABETES MELLITUS

REACTIONS (13)
  - NIGHTMARE [None]
  - DEREALISATION [None]
  - NAUSEA [None]
  - DIARRHOEA [None]
  - DYSPNOEA [None]
  - CHEST PAIN [None]
  - HOT FLUSH [None]
  - VOMITING [None]
  - TREMOR [None]
  - INSOMNIA [None]
  - MALAISE [None]
  - HALLUCINATION [None]
  - ASTHENIA [None]
